FAERS Safety Report 8573882 (Version 3)
Quarter: 2013Q1

REPORT INFORMATION
  Report Type: Spontaneous
  Country: US (occurrence: US)
  Receive Date: 20120522
  Receipt Date: 20130126
  Transmission Date: 20140127
  Serious: No
  Sender: FDA-Public Use
  Company Number: US-ASTRAZENECA-2011SE57781

PATIENT
  Age: 66 Year
  Sex: Female

DRUGS (4)
  1. PRILOSEC [Suspect]
     Route: 048
  2. PRILOSEC OTC [Suspect]
     Route: 048
  3. SYMBICORT PMDI [Suspect]
     Route: 055
  4. NEXIUM [Suspect]
     Route: 048

REACTIONS (10)
  - Gastrooesophageal reflux disease [Unknown]
  - Arthritis [Unknown]
  - Diverticulitis [Unknown]
  - Intervertebral disc degeneration [Unknown]
  - Cholelithiasis [Unknown]
  - Bacterial infection [Unknown]
  - Dehydration [Unknown]
  - Mobility decreased [Unknown]
  - Malaise [Unknown]
  - Diarrhoea [Unknown]
